FAERS Safety Report 4916650-X (Version None)
Quarter: 2006Q1

REPORT INFORMATION
  Report Type: 
  Country: None (occurrence: None)
  Receive Date: 20060216
  Receipt Date: 20060216
  Transmission Date: 20060701
  Serious: Yes (Other)
  Sender: FDA-Public Use
  Company Number: None

PATIENT
  Age: 84 Year
  Sex: Male
  Weight: 95.3 kg

DRUGS (9)
  1. QUETIAPINE [Suspect]
  2. BISOPROLOL FUMARATE [Concomitant]
  3. FUROSEMIDE [Concomitant]
  4. CLOPIDOGRL BISULFATE [Concomitant]
  5. VERAPAMIL HCL [Concomitant]
  6. MIRTAZAPINE [Concomitant]
  7. HYDROCORTISONE 1% OINTMENT [Concomitant]
  8. IPRATROPIUM BROMIDE [Concomitant]
  9. ALBUTEROL S04 0.083% INHL [Concomitant]

REACTIONS (2)
  - APTYALISM [None]
  - CONSTIPATION [None]
